FAERS Safety Report 22706309 (Version 5)
Quarter: 2024Q1

REPORT INFORMATION
  Report Type: Spontaneous
  Country: US (occurrence: US)
  Receive Date: 20230714
  Receipt Date: 20240103
  Transmission Date: 20240410
  Serious: Yes (Other)
  Sender: FDA-Public Use
  Company Number: US-PFIZER INC-PV202300121910

PATIENT
  Age: 73 Year
  Sex: Female
  Weight: 109.93 kg

DRUGS (3)
  1. IBRANCE [Suspect]
     Active Substance: PALBOCICLIB
     Indication: Breast cancer metastatic
     Dosage: 1 TABLET DAILY, ADMINISTER ON DAYS 1 THROUGH 21 OF A 28-DAY TREATMENT CYCLE
     Route: 048
  2. ARIMIDEX [Concomitant]
     Active Substance: ANASTROZOLE
     Dosage: UNK
  3. TRASTUZUMAB [Concomitant]
     Active Substance: TRASTUZUMAB
     Dosage: UNK

REACTIONS (4)
  - Cataract [Unknown]
  - Dyspnoea [Unknown]
  - Oedema peripheral [Unknown]
  - Off label use [Unknown]
